FAERS Safety Report 9756630 (Version 2)
Quarter: 2013Q4

REPORT INFORMATION
  Report Type: Report from Study
  Country: NL (occurrence: NL)
  Receive Date: 20131213
  Receipt Date: 20131213
  Transmission Date: 20140711
  Serious: Yes (Death, Hospitalization)
  Sender: FDA-Public Use
  Company Number: NL-CELGENEUS-114-50794-13105737

PATIENT
  Age: 75 Year
  Sex: Female
  Weight: 68 kg

DRUGS (26)
  1. VIDAZA [Suspect]
     Indication: ACUTE MYELOID LEUKAEMIA
     Dosage: 130 MILLIGRAM
     Route: 058
     Dates: start: 20130805
  2. VIDAZA [Suspect]
     Dosage: 130 MILLIGRAM
     Route: 058
     Dates: start: 20130930, end: 20131025
  3. METOPROLOL [Concomitant]
     Indication: HYPERTENSION
     Dosage: 25 MILLIGRAM
     Route: 048
     Dates: end: 20130930
  4. ONDANSETRON [Concomitant]
     Indication: PROPHYLAXIS OF NAUSEA AND VOMITING
     Dosage: 24 MILLIGRAM
     Route: 048
     Dates: start: 20130801
  5. METOCLOPRAMIDE [Concomitant]
     Indication: PROPHYLAXIS OF NAUSEA AND VOMITING
     Dosage: 60 MILLIGRAM
     Route: 048
     Dates: start: 20130801
  6. OMEPRAZOLE [Concomitant]
     Indication: PROPHYLAXIS
     Dosage: 20 MILLIGRAM
     Route: 048
     Dates: start: 2009
  7. CIPROFLOXACINE [Concomitant]
     Indication: LIP INFECTION
     Dosage: 1500 MILLIGRAM
     Route: 048
     Dates: start: 20130930, end: 20131006
  8. MACROGOL [Concomitant]
     Indication: CONSTIPATION
     Dosage: 1 DOSAGE FORMS
     Route: 048
     Dates: start: 20130912
  9. VORICONAZOLE [Concomitant]
     Indication: FUNGAL INFECTION
     Dosage: 400 MILLIGRAM
     Route: 048
     Dates: start: 20131022
  10. PEGFILGRASTIM [Concomitant]
     Indication: WHITE BLOOD CELL COUNT DECREASED
     Route: 058
     Dates: start: 20131029, end: 20131029
  11. CLEMASTINE [Concomitant]
     Indication: HYPERSENSITIVITY
     Route: 041
     Dates: start: 20131023, end: 20131106
  12. CLEMASTINE [Concomitant]
     Route: 041
     Dates: start: 20131018, end: 20131018
  13. NADROPARINE [Concomitant]
     Indication: PROPHYLAXIS
     Dosage: .3 MILLILITER
     Route: 058
     Dates: start: 20131024, end: 20131024
  14. FUROSEMIDE [Concomitant]
     Indication: PROPHYLAXIS
     Route: 041
     Dates: start: 20131018, end: 20131019
  15. MOVICOLON [Concomitant]
     Indication: PRODUCT USED FOR UNKNOWN INDICATION
     Route: 065
     Dates: start: 20130912
  16. TAVEGYL [Concomitant]
     Indication: PRODUCT USED FOR UNKNOWN INDICATION
     Route: 065
     Dates: start: 20131006, end: 20131006
  17. TAVEGYL [Concomitant]
     Route: 065
     Dates: start: 20131018, end: 20131106
  18. RED BLOOD CELLS [Concomitant]
     Indication: PANCYTOPENIA
     Route: 041
     Dates: start: 20131009, end: 20131009
  19. RED BLOOD CELLS [Concomitant]
     Route: 041
     Dates: start: 20131018, end: 20131019
  20. RED BLOOD CELLS [Concomitant]
     Route: 041
     Dates: start: 20131028, end: 20131028
  21. RED BLOOD CELLS [Concomitant]
     Route: 041
     Dates: start: 20131031, end: 20131031
  22. PLATELETS [Concomitant]
     Indication: PANCYTOPENIA
     Route: 041
     Dates: start: 20131009, end: 20131009
  23. PLATELETS [Concomitant]
     Route: 041
     Dates: start: 20131018, end: 20131018
  24. PLATELETS [Concomitant]
     Route: 041
     Dates: start: 20131022, end: 20131023
  25. PLATELETS [Concomitant]
     Route: 041
     Dates: start: 20131028, end: 20131028
  26. PLATELETS [Concomitant]
     Route: 041
     Dates: start: 20131101, end: 20131101

REACTIONS (2)
  - Bronchopulmonary aspergillosis [Fatal]
  - Pancytopenia [Recovered/Resolved with Sequelae]
